FAERS Safety Report 4738341-0 (Version None)
Quarter: 2005Q3

REPORT INFORMATION
  Report Type: 
  Country: None (occurrence: None)
  Receive Date: 20050728
  Receipt Date: 20050412
  Transmission Date: 20060218
  Serious: No
  Sender: FDA-Public Use
  Company Number: 200513048US

PATIENT
  Sex: Male

DRUGS (2)
  1. KETEK [Suspect]
     Dosage: 800 MG QD
  2. KETEK [Suspect]
     Dosage: 800 MG QD

REACTIONS (1)
  - VERTIGO [None]
